FAERS Safety Report 7897362-X (Version None)
Quarter: 2011Q4

REPORT INFORMATION
  Report Type: 
  Country: None (occurrence: None)
  Receive Date: 20111103
  Receipt Date: 20111024
  Transmission Date: 20120403
  Serious: Yes (Congenital Anomaly)
  Sender: FDA-Public Use
  Company Number: 1000024999

PATIENT

DRUGS (1)
  1. CELEXA [Suspect]
     Dosage: TRANSPLACENTAL
     Route: 064
     Dates: end: 20091217

REACTIONS (2)
  - MULTIPLE CONGENITAL ABNORMALITIES [None]
  - MATERNAL DRUGS AFFECTING FOETUS [None]
